FAERS Safety Report 15054056 (Version 1)
Quarter: 2018Q2

REPORT INFORMATION
  Report Type: Spontaneous
  Country: US (occurrence: US)
  Receive Date: 20180622
  Receipt Date: 20180622
  Transmission Date: 20180711
  Serious: No
  Sender: FDA-Public Use
  Company Number: US-MYLANLABS-2018M1037607

PATIENT

DRUGS (1)
  1. ALLOPURINOL TABLETS, USP [Suspect]
     Active Substance: ALLOPURINOL
     Indication: GOUT
     Dosage: UNK
     Route: 048

REACTIONS (2)
  - Gout [Unknown]
  - Drug ineffective [Unknown]
